FAERS Safety Report 5318655-6 (Version None)
Quarter: 2007Q2

REPORT INFORMATION
  Report Type: 
  Country: None (occurrence: None)
  Receive Date: 20070508
  Receipt Date: 20070430
  Transmission Date: 20071010
  Serious: Yes (Hospitalization)
  Sender: FDA-Public Use
  Company Number: PHEH2007US06640

PATIENT
  Sex: Female

DRUGS (3)
  1. ZELNORM [Suspect]
     Indication: IRRITABLE BOWEL SYNDROME
     Dosage: 6 MG, BID
     Route: 048
     Dates: start: 20040101, end: 20060801
  2. ZELNORM [Suspect]
     Dosage: 6 MG, TID
     Route: 048
     Dates: start: 20060801
  3. MIRALAX [Concomitant]
     Indication: IRRITABLE BOWEL SYNDROME

REACTIONS (4)
  - APHASIA [None]
  - CHEST DISCOMFORT [None]
  - CHEST PAIN [None]
  - HEART RATE DECREASED [None]
